FAERS Safety Report 8895318 (Version 1)
Quarter: 2012Q4

REPORT INFORMATION
  Report Type: 
  Country: US (occurrence: US)
  Receive Date: 20121108
  Receipt Date: 20121108
  Transmission Date: 20130627
  Serious: No
  Sender: FDA-Public Use
  Company Number: US-BAYER-2012-115605

PATIENT
  Age: 43 Year
  Sex: Male
  Weight: 79.37 kg

DRUGS (5)
  1. ALEVE LIQUID GELS [Suspect]
     Indication: GENERAL BODY PAIN
     Dosage: UNK
     Route: 048
     Dates: start: 2004
  2. ALEVE SMOOTH GELS [Suspect]
  3. LORCET [Concomitant]
  4. SOMA [Concomitant]
  5. NEURONTIN [Concomitant]

REACTIONS (1)
  - Incorrect drug administration duration [Not Recovered/Not Resolved]
